FAERS Safety Report 4290378-4 (Version None)
Quarter: 2004Q1

REPORT INFORMATION
  Report Type: 
  Country: None (occurrence: None)
  Receive Date: 20040209
  Receipt Date: 20031208
  Transmission Date: 20041129
  Serious: Yes (Death)
  Sender: FDA-Public Use
  Company Number: RB-316-2003

PATIENT
  Age: 30 Year
  Sex: Female

DRUGS (3)
  1. BUPRENORPHINE HYDROCHLORIDE [Suspect]
     Dosage: IV
     Route: 042
  2. CLORAZEPATE DIPOTASSIUM [Concomitant]
  3. TETRAZEPAM [Concomitant]

REACTIONS (3)
  - ENDOCARDITIS [None]
  - INTENTIONAL MISUSE [None]
  - MEDICATION ERROR [None]
